FAERS Safety Report 14209289 (Version 2)
Quarter: 2018Q4

REPORT INFORMATION
  Report Type: Spontaneous
  Country: US (occurrence: US)
  Receive Date: 20171121
  Receipt Date: 20181101
  Transmission Date: 20190204
  Serious: Yes (Hospitalization)
  Sender: FDA-Public Use
  Company Number: US-JNJFOC-20171018561

PATIENT
  Age: 71 Year
  Sex: Female

DRUGS (12)
  1. ANUCORT-HC [Concomitant]
     Active Substance: HYDROCORTISONE ACETATE
     Route: 065
  2. LISINOPRIL. [Concomitant]
     Active Substance: LISINOPRIL
     Route: 048
  3. MOBIC [Suspect]
     Active Substance: MELOXICAM
     Indication: PRODUCT USED FOR UNKNOWN INDICATION
     Route: 065
  4. PAXIL [Concomitant]
     Active Substance: PAROXETINE HYDROCHLORIDE
     Route: 048
  5. RANITIDINE. [Concomitant]
     Active Substance: RANITIDINE
     Route: 048
  6. XARELTO [Suspect]
     Active Substance: RIVAROXABAN
     Indication: THROMBOSIS PROPHYLAXIS
     Dosage: DAILY WITH SUPPER
     Route: 048
     Dates: start: 20170528, end: 20170622
  7. XARELTO [Suspect]
     Active Substance: RIVAROXABAN
     Indication: CEREBROVASCULAR ACCIDENT PROPHYLAXIS
     Dosage: DAILY WITH SUPPER
     Route: 048
     Dates: start: 20170528, end: 20170622
  8. XARELTO [Suspect]
     Active Substance: RIVAROXABAN
     Indication: ATRIAL FIBRILLATION
     Dosage: DAILY WITH SUPPER
     Route: 048
     Dates: start: 20170528, end: 20170622
  9. ASPIRIN. [Suspect]
     Active Substance: ASPIRIN
     Indication: ISCHAEMIC STROKE
     Route: 065
     Dates: start: 20170528
  10. AMLODIPINE [Concomitant]
     Active Substance: AMLODIPINE BESYLATE
     Route: 048
  11. ASPIRIN. [Suspect]
     Active Substance: ASPIRIN
     Indication: ATRIAL FIBRILLATION
     Route: 065
     Dates: start: 20170528
  12. ATORVASTATIN [Concomitant]
     Active Substance: ATORVASTATIN
     Route: 048

REACTIONS (1)
  - Rectal haemorrhage [Recovering/Resolving]

NARRATIVE: CASE EVENT DATE: 20170531
